FAERS Safety Report 7123570-1 (Version None)
Quarter: 2010Q4

REPORT INFORMATION
  Report Type: 
  Country: None (occurrence: None)
  Receive Date: 20101125
  Receipt Date: 20101122
  Transmission Date: 20110411
  Serious: Yes (Death)
  Sender: FDA-Public Use
  Company Number: MX-SHIRE-SPV1-2010-02043

PATIENT
  Age: 21 Year
  Sex: Female

DRUGS (1)
  1. VPRIV [Suspect]
     Indication: PRODUCT USED FOR UNKNOWN INDICATION
     Dosage: 60 IU/KG, 1X/2WKS
     Route: 041
     Dates: start: 20100323

REACTIONS (1)
  - COMPLETED SUICIDE [None]
